FAERS Safety Report 12647284 (Version 1)
Quarter: 2016Q3

REPORT INFORMATION
  Report Type: Spontaneous
  Country: US (occurrence: None)
  Receive Date: 20160811
  Receipt Date: 20160811
  Transmission Date: 20161109
  Serious: Yes (Hospitalization)
  Sender: FDA-Public Use
  Company Number: None

PATIENT
  Age: 73 Year
  Sex: Female
  Weight: 60 kg

DRUGS (1)
  1. DALTEPARIN [Suspect]
     Active Substance: DALTEPARIN
     Indication: DEEP VEIN THROMBOSIS
     Route: 058
     Dates: start: 20160527, end: 20160808

REACTIONS (3)
  - Thrombosis [None]
  - Disease recurrence [None]
  - Condition aggravated [None]

NARRATIVE: CASE EVENT DATE: 20160806
